FAERS Safety Report 20288761 (Version 1)
Quarter: 2022Q1

REPORT INFORMATION
  Report Type: Spontaneous
  Country: US (occurrence: US)
  Receive Date: 20220104
  Receipt Date: 20220104
  Transmission Date: 20220424
  Serious: No
  Sender: FDA-Public Use
  Company Number: US-TEVA-2021-US-1988203

PATIENT
  Sex: Female

DRUGS (2)
  1. PREDNISONE [Suspect]
     Active Substance: PREDNISONE
     Route: 065
  2. UMBRALISIB [Suspect]
     Active Substance: UMBRALISIB
     Route: 065

REACTIONS (5)
  - Spleen disorder [Unknown]
  - Visual impairment [Unknown]
  - Road traffic accident [Unknown]
  - Exhibitionism [Unknown]
  - Vitreous floaters [Unknown]

NARRATIVE: CASE EVENT DATE: 20120101
